FAERS Safety Report 15105014 (Version 4)
Quarter: 2018Q3

REPORT INFORMATION
  Report Type: Report from Study
  Country: PL (occurrence: PL)
  Receive Date: 20180703
  Receipt Date: 20180823
  Transmission Date: 20181010
  Serious: Yes (Hospitalization)
  Sender: FDA-Public Use
  Company Number: PL-AMGEN-POLCT2018089003

PATIENT
  Age: 30 Year
  Sex: Female
  Weight: 45.9 kg

DRUGS (24)
  1. CARFILZOMIB [Suspect]
     Active Substance: CARFILZOMIB
     Dosage: UNK UNK, PER CHEMO REGIM
     Route: 042
     Dates: start: 20180712
  2. DARATUMUMAB [Suspect]
     Active Substance: DARATUMUMAB
     Indication: PLASMA CELL MYELOMA
     Dosage: 768 MG, PER CHEMO REGIM
     Route: 042
     Dates: start: 20180116
  3. CONCOR COR [Concomitant]
     Active Substance: BISOPROLOL FUMARATE
     Dosage: 1 UNK, UNK
     Dates: start: 20180322
  4. NO?SPA [Concomitant]
     Active Substance: DROTAVERINE HYDROCHLORIDE
     Dosage: 1 UNK, UNK
     Dates: start: 20180328
  5. MONTELUCAST [Concomitant]
     Active Substance: MONTELUKAST SODIUM
     Dosage: 10 MG, UNK
     Route: 048
     Dates: start: 20180516
  6. CARFILZOMIB [Suspect]
     Active Substance: CARFILZOMIB
     Indication: PLASMA CELL MYELOMA
     Dosage: UNK UNK, PER CHEMO REGIM
     Route: 042
     Dates: start: 20180116
  7. TAMIFLU [Concomitant]
     Active Substance: OSELTAMIVIR PHOSPHATE
     Dosage: 1 UNK, UNK
     Dates: start: 20180329, end: 20180402
  8. MILURIT [Concomitant]
     Active Substance: ALLOPURINOL
     Dosage: 1 UNK, UNK
     Dates: start: 20180120
  9. METHYLPREDNISOLONE. [Concomitant]
     Active Substance: METHYLPREDNISOLONE
     Dosage: 20 MG, UNK
     Route: 048
     Dates: start: 20180120
  10. BISEPTOL [Concomitant]
     Active Substance: SULFAMETHOXAZOLE\TRIMETHOPRIM
     Dosage: 1 UNK, UNK
     Route: 048
     Dates: start: 20180116
  11. DEXAMETHASONE. [Suspect]
     Active Substance: DEXAMETHASONE
     Indication: PLASMA CELL MYELOMA
     Dosage: 20?40 MG, UNK
     Route: 048
     Dates: start: 20180116
  12. DEVIKAP [Concomitant]
     Dosage: 4 GTT, UNK
     Dates: start: 20180206
  13. CLEMASTINE [Concomitant]
     Active Substance: CLEMASTINE
     Dosage: 2 MG, UNK
     Route: 048
     Dates: start: 20180116
  14. CALPEROS [Concomitant]
     Active Substance: CALCIUM CARBONATE
     Dosage: 2 UNK, UNK
     Dates: start: 20180314, end: 20180719
  15. NACL [Concomitant]
     Active Substance: SODIUM CHLORIDE
     Dosage: 500 ML, UNK
     Dates: start: 20180417, end: 20180517
  16. PARACETAMOL [Concomitant]
     Active Substance: ACETAMINOPHEN
     Dosage: 500?1000 MG AND 1 G, UNK
     Route: 048
     Dates: start: 20180116, end: 20180517
  17. MONTELUKAST [Concomitant]
     Active Substance: MONTELUKAST SODIUM
     Dosage: 10 MG, UNK
     Route: 048
     Dates: start: 20180116
  18. FUROSEMIDE. [Concomitant]
     Active Substance: FUROSEMIDE
     Dosage: 20 MG, UNK
     Dates: start: 20180417, end: 20180418
  19. DARATUMUMAB [Suspect]
     Active Substance: DARATUMUMAB
     Dosage: UNK UNK, PER CHEMO REGIM
     Route: 042
     Dates: start: 20180712
  20. LEVOXA [Concomitant]
     Active Substance: LEVOFLOXACIN
     Dosage: 1 UNK, UNK
     Dates: start: 20180329, end: 20180407
  21. ZOLEDRONIC ACID [Concomitant]
     Active Substance: ZOLEDRONIC ACID
     Dosage: 4 MG, UNK
     Dates: start: 20180517, end: 20180517
  22. APAP [Concomitant]
     Active Substance: ACETAMINOPHEN
     Dosage: 500 MG, UNK
     Dates: start: 20180507, end: 20180508
  23. HASCOVIR [Concomitant]
     Dosage: 3 UNK, UNK
     Route: 048
     Dates: start: 20180116
  24. CONTROLOC [Concomitant]
     Active Substance: PANTOPRAZOLE SODIUM
     Dosage: 1 UNK, UNK
     Route: 048
     Dates: start: 20180116

REACTIONS (1)
  - Sinusitis [Recovered/Resolved]

NARRATIVE: CASE EVENT DATE: 20180627
